FAERS Safety Report 9912489 (Version 1)
Quarter: 2014Q1

REPORT INFORMATION
  Report Type: Spontaneous
  Country: IT (occurrence: IT)
  Receive Date: 20140220
  Receipt Date: 20140220
  Transmission Date: 20141002
  Serious: Yes (Other)
  Sender: FDA-Public Use
  Company Number: IT-BRISTOL-MYERS SQUIBB COMPANY-20194197

PATIENT
  Age: 77 Year
  Sex: Female
  Weight: 64 kg

DRUGS (2)
  1. CARBOPLATIN INJECTION [Suspect]
     Indication: BLADDER CANCER
     Dosage: LAST DOSE: 26-SEP-2013
     Route: 042
     Dates: start: 20130417
  2. GEMCITABINE [Suspect]
     Indication: BLADDER CANCER
     Dosage: LAST DOSE: 26-SEP-2013
     Route: 042
     Dates: start: 20130417

REACTIONS (1)
  - Neutropenia [Unknown]
